FAERS Safety Report 6784880-0 (Version None)
Quarter: 2010Q2

REPORT INFORMATION
  Report Type: 
  Country: None (occurrence: None)
  Receive Date: 20100622
  Receipt Date: 20100617
  Transmission Date: 20101027
  Serious: Yes (Hospitalization)
  Sender: FDA-Public Use
  Company Number: DE-EISAI INC.-E2090-01165-SPO-DE

PATIENT
  Sex: Male
  Weight: 90 kg

DRUGS (6)
  1. ZONEGRAN [Suspect]
     Indication: EPILEPSY
     Route: 048
     Dates: start: 20100319
  2. TIMONIL RETARD [Interacting]
     Indication: EPILEPSY
     Route: 048
  3. ERGENYL [Concomitant]
     Indication: EPILEPSY
     Route: 048
  4. ASPIRIN [Concomitant]
     Route: 048
  5. DYTIOLE M [Concomitant]
     Indication: OEDEMA
  6. DIPIPERON [Concomitant]

REACTIONS (4)
  - CARDIAC ARREST [None]
  - DRUG INTERACTION [None]
  - MUSCULAR WEAKNESS [None]
  - OEDEMA [None]
